FAERS Safety Report 18467126 (Version 2)
Quarter: 2021Q1

REPORT INFORMATION
  Report Type: Spontaneous
  Country: US (occurrence: US)
  Receive Date: 20201105
  Receipt Date: 20210105
  Transmission Date: 20210419
  Serious: Yes (Other)
  Sender: FDA-Public Use
  Company Number: US-BAYER-2020-235861

PATIENT
  Age: 25 Year
  Sex: Female
  Weight: 51.7 kg

DRUGS (1)
  1. MIRENA [Suspect]
     Active Substance: LEVONORGESTREL
     Indication: CONTRACEPTION
     Dosage: 20?G PER DAY, CONTINUOUSLY
     Route: 015
     Dates: start: 20160308, end: 20201021

REACTIONS (6)
  - Ruptured ectopic pregnancy [Recovered/Resolved]
  - Medical device pain [None]
  - Drug ineffective [None]
  - Haemorrhage in pregnancy [None]
  - Ectopic pregnancy with contraceptive device [Recovered/Resolved]
  - Pelvic fluid collection [None]

NARRATIVE: CASE EVENT DATE: 2020
